FAERS Safety Report 21974325 (Version 2)
Quarter: 2023Q1

REPORT INFORMATION
  Report Type: Spontaneous
  Country: US (occurrence: US)
  Receive Date: 20230209
  Receipt Date: 20230306
  Transmission Date: 20230417
  Serious: No
  Sender: FDA-Public Use
  Company Number: US-MLMSERVICE-20230127-4067068-1

PATIENT
  Age: 57 Year
  Sex: Male

DRUGS (4)
  1. CROMOLYN [Suspect]
     Active Substance: CROMOLYN
     Indication: Chronic obstructive pulmonary disease
     Route: 055
  2. FLUTICASONE [Suspect]
     Active Substance: FLUTICASONE
     Indication: Chronic obstructive pulmonary disease
     Route: 055
  3. ALBUTEROL [Suspect]
     Active Substance: ALBUTEROL
     Indication: Chronic obstructive pulmonary disease
     Route: 065
  4. IPRATROPIUM [Suspect]
     Active Substance: IPRATROPIUM
     Indication: Chronic obstructive pulmonary disease
     Route: 065

REACTIONS (1)
  - Pseudophaeochromocytoma [Unknown]
